FAERS Safety Report 9457792 (Version 1)
Quarter: 2013Q3

REPORT INFORMATION
  Report Type: Report from Study
  Country: US (occurrence: US)
  Receive Date: 20130814
  Receipt Date: 20130814
  Transmission Date: 20140515
  Serious: Yes (Hospitalization)
  Sender: FDA-Public Use
  Company Number: PHHO2011US018596

PATIENT
  Age: 46 Year
  Sex: Male
  Weight: 84.72 kg

DRUGS (1)
  1. ALISKIREN [Suspect]
     Indication: CARDIAC FAILURE ACUTE
     Dosage: UNK
     Route: 048
     Dates: start: 20110901

REACTIONS (1)
  - Renal failure acute [Recovering/Resolving]
